FAERS Safety Report 6885350-1 (Version None)
Quarter: 2010Q3

REPORT INFORMATION
  Report Type: 
  Country: None (occurrence: None)
  Receive Date: 20100729
  Receipt Date: 20100715
  Transmission Date: 20110219
  Serious: Yes (Hospitalization)
  Sender: FDA-Public Use
  Company Number: US-MYLANLABS-2010S1012420

PATIENT
  Age: 46 Year
  Sex: Female

DRUGS (7)
  1. ESTRADIOL [Suspect]
     Dosage: 75MG EVERY 12- TO-16 WEEKS
     Route: 058
  2. TESTOSTERONE [Concomitant]
     Dosage: 25MG EVERY 12- TO-16 WEEKS
     Route: 065
  3. LEVOTHYROXINE SODIUM [Concomitant]
     Route: 065
  4. ASPIRIN [Concomitant]
     Route: 065
  5. FENOFIBRATE [Concomitant]
     Route: 065
  6. OMEGA 3 /00931501/ [Concomitant]
     Route: 065
  7. DYAZIDE [Concomitant]
     Indication: OEDEMA
     Dosage: 37.5/25MG
     Route: 065

REACTIONS (6)
  - ABDOMINAL PAIN [None]
  - BILIARY DYSKINESIA [None]
  - FOCAL NODULAR HYPERPLASIA [None]
  - HYPERTRIGLYCERIDAEMIA [None]
  - NAUSEA [None]
  - OVARIAN HYPERFUNCTION [None]
